FAERS Safety Report 7980464-7 (Version None)
Quarter: 2011Q4

REPORT INFORMATION
  Report Type: 
  Country: None (occurrence: None)
  Receive Date: 20111214
  Receipt Date: 20111209
  Transmission Date: 20120403
  Serious: Yes (Other)
  Sender: FDA-Public Use
  Company Number: US-GLAXOSMITHKLINE-A0953912A

PATIENT
  Age: 76 Year
  Sex: Male

DRUGS (9)
  1. SINEMET CR [Concomitant]
  2. NAMENDA [Concomitant]
  3. KLONOPIN [Concomitant]
  4. REQUIP XL [Suspect]
     Indication: PARKINSON'S DISEASE
     Dosage: 8MG PER DAY
     Route: 048
     Dates: start: 20110501
  5. LOSARTAN POTASSIUM [Concomitant]
  6. PLAVIX [Concomitant]
  7. COREG [Suspect]
     Route: 065
  8. VYTORIN [Concomitant]
  9. MOBIC [Concomitant]

REACTIONS (1)
  - HALLUCINATION, VISUAL [None]
